FAERS Safety Report 13261680 (Version 2)
Quarter: 2017Q2

REPORT INFORMATION
  Report Type: Spontaneous
  Country: LT (occurrence: LT)
  Receive Date: 20170222
  Receipt Date: 20170418
  Transmission Date: 20170830
  Serious: Yes (Other)
  Sender: FDA-Public Use
  Company Number: LT-009507513-1702LTU003157

PATIENT
  Sex: Female

DRUGS (2)
  1. SINEMET CR [Suspect]
     Active Substance: CARBIDOPA\LEVODOPA
     Indication: PARKINSON^S DISEASE
     Dosage: 1 TABLET IN THE MORNING AND 1 TABLET IN THE AFTERNOON
     Route: 048
  2. SINEMET CR [Suspect]
     Active Substance: CARBIDOPA\LEVODOPA
     Dosage: TAKING PEACH COLOUR TABLETS, GREY TABLETS, 1 TABLET IN THE MORNING AND 1 TABLET IN THE AFTERNOON
     Route: 048
     Dates: start: 201608

REACTIONS (6)
  - Drug ineffective [Recovered/Resolved]
  - Parkinson^s disease [Unknown]
  - Gait disturbance [Recovered/Resolved]
  - Tremor [Recovered/Resolved]
  - Drug dose omission [Unknown]
  - Product quality issue [Unknown]

NARRATIVE: CASE EVENT DATE: 2016
